FAERS Safety Report 12176788 (Version 2)
Quarter: 2016Q2

REPORT INFORMATION
  Report Type: Spontaneous
  Country: ZA (occurrence: ZA)
  Receive Date: 20160315
  Receipt Date: 20160420
  Transmission Date: 20160815
  Serious: Yes (Hospitalization)
  Sender: FDA-Public Use
  Company Number: ZA-ROCHE-1724895

PATIENT
  Age: 2 Year
  Sex: Female

DRUGS (7)
  1. ZITHROMAX [Interacting]
     Active Substance: AZITHROMYCIN DIHYDRATE
     Indication: PRODUCT USED FOR UNKNOWN INDICATION
     Route: 065
  2. PERFALGAN [Concomitant]
     Active Substance: ACETAMINOPHEN
     Route: 042
  3. ROCEPHIN [Suspect]
     Active Substance: CEFTRIAXONE SODIUM
     Indication: PNEUMONIA
     Route: 065
  4. EPILIM [Interacting]
     Active Substance: VALPROATE SODIUM
     Indication: SEIZURE
     Route: 048
  5. EPILIM [Interacting]
     Active Substance: VALPROATE SODIUM
     Route: 042
  6. AMIKACIN [Interacting]
     Active Substance: AMIKACIN
     Indication: PRODUCT USED FOR UNKNOWN INDICATION
     Route: 065
  7. DUOLIN [Concomitant]

REACTIONS (4)
  - Status epilepticus [Recovered/Resolved]
  - Drug level decreased [Unknown]
  - Seizure [Unknown]
  - Drug interaction [Unknown]
